FAERS Safety Report 16662462 (Version 3)
Quarter: 2019Q4

REPORT INFORMATION
  Report Type: Report from Study
  Country: US (occurrence: US)
  Receive Date: 20190802
  Receipt Date: 20191121
  Transmission Date: 20200122
  Serious: Yes (Other)
  Sender: FDA-Public Use
  Company Number: PHEH2019US032077

PATIENT
  Age: 31 Year
  Sex: Female
  Weight: 63 kg

DRUGS (1)
  1. GILENYA [Suspect]
     Active Substance: FINGOLIMOD HYDROCHLORIDE
     Indication: PATERNAL EXPOSURE DURING PREGNANCY
     Dosage: FETAL DRUG EXPOSURE VIA PARTNER: 0.5 MG QD
     Route: 050

REACTIONS (3)
  - Premature delivery [Unknown]
  - Umbilical cord around neck [Unknown]
  - Exposure via partner [Unknown]

NARRATIVE: CASE EVENT DATE: 20191007
